FAERS Safety Report 7479908-9 (Version None)
Quarter: 2011Q2

REPORT INFORMATION
  Report Type: 
  Country: None (occurrence: None)
  Receive Date: 20110516
  Receipt Date: 20110505
  Transmission Date: 20111010
  Serious: Yes (Hospitalization)
  Sender: FDA-Public Use
  Company Number: US-BIOGENIDEC-2010BI019174

PATIENT
  Age: 58 Year
  Sex: Female

DRUGS (3)
  1. VITAMIN B-12 [Concomitant]
     Indication: PERNICIOUS ANAEMIA
  2. TYSABRI [Suspect]
     Indication: MULTIPLE SCLEROSIS
     Route: 042
     Dates: start: 20080421
  3. FERROUS SULFATE TAB [Concomitant]
     Indication: PERNICIOUS ANAEMIA

REACTIONS (4)
  - HAEMORRHAGE [None]
  - CLOSTRIDIUM DIFFICILE COLITIS [None]
  - CARDIAC FAILURE CONGESTIVE [None]
  - ANAEMIA [None]
